FAERS Safety Report 25628082 (Version 2)
Quarter: 2025Q3

REPORT INFORMATION
  Report Type: Report from Study
  Country: EU (occurrence: EU)
  Receive Date: 20250731
  Receipt Date: 20250804
  Transmission Date: 20251020
  Serious: Yes (Death)
  Sender: PFIZER
  Company Number: EU-PFIZER INC-PV202500091490

PATIENT
  Age: 64 Year
  Sex: Male
  Weight: 62 kg

DRUGS (21)
  1. ELRANATAMAB [Suspect]
     Active Substance: ELRANATAMAB
     Indication: Plasma cell myeloma
     Route: 058
     Dates: start: 20250625, end: 20250625
  2. ELRANATAMAB [Suspect]
     Active Substance: ELRANATAMAB
     Dates: start: 20250628
  3. ELRANATAMAB [Suspect]
     Active Substance: ELRANATAMAB
     Dates: start: 20250702, end: 20250702
  4. GAVISCON [ALGINIC ACID;ALUMINIUM HYDROXIDE;MAGNESIUM TRISILICATE;SODIU [Concomitant]
     Indication: Gastrointestinal pain
     Route: 048
     Dates: start: 20250716, end: 20250725
  5. LEUCOVORIN CALCIUM [Concomitant]
     Active Substance: LEUCOVORIN CALCIUM
     Indication: Prophylaxis
     Route: 048
     Dates: end: 20250722
  6. POLYETHYLENE GLYCOLS [Concomitant]
     Active Substance: POLYETHYLENE GLYCOLS
     Indication: Constipation
     Route: 048
     Dates: start: 20250719, end: 20250719
  7. PENICILLIN V [Concomitant]
     Active Substance: PENICILLIN V
     Indication: Prophylaxis
     Route: 048
     Dates: end: 20250723
  8. BISOPROLOL [Concomitant]
     Active Substance: BISOPROLOL
     Indication: Tachycardia
     Route: 048
     Dates: start: 20250707, end: 20250724
  9. OXYCONTIN [Concomitant]
     Active Substance: OXYCODONE HYDROCHLORIDE
     Indication: Bone pain
     Route: 048
     Dates: end: 20250722
  10. ALPRAZOLAM [Concomitant]
     Active Substance: ALPRAZOLAM
     Indication: Anxiety
     Route: 048
     Dates: start: 20250623, end: 20250725
  11. PRIMPERAN [Concomitant]
     Active Substance: METOCLOPRAMIDE HYDROCHLORIDE
     Indication: Nausea
     Route: 048
     Dates: start: 20250721, end: 20250724
  12. NICARDIPINE HYDROCHLORIDE [Concomitant]
     Active Substance: NICARDIPINE HYDROCHLORIDE
     Indication: Hypertension
     Route: 048
     Dates: start: 20250626, end: 20250720
  13. ONDANSETRON [Concomitant]
     Active Substance: ONDANSETRON
     Indication: Nausea
     Route: 048
     Dates: start: 20250624, end: 20250719
  14. ACETAMINOPHEN [Concomitant]
     Active Substance: ACETAMINOPHEN
     Indication: Pain
     Route: 048
     Dates: start: 20250724, end: 20250724
  15. KAYEXALATE [Concomitant]
     Active Substance: SODIUM POLYSTYRENE SULFONATE
     Indication: Hyperkalaemia
     Route: 048
     Dates: start: 20250716, end: 20250716
  16. POMALIDOMIDE [Concomitant]
     Active Substance: POMALIDOMIDE
     Indication: Plasma cell myeloma
     Route: 048
     Dates: start: 20250708, end: 20250717
  17. URAPIDIL [Concomitant]
     Active Substance: URAPIDIL
     Indication: Hypertension
     Route: 048
     Dates: start: 20250626, end: 20250720
  18. FILGRASTIM [Concomitant]
     Active Substance: FILGRASTIM
     Indication: Plasma cell myeloma
     Route: 058
     Dates: start: 20250721, end: 20250723
  19. INNOHEP [Concomitant]
     Active Substance: TINZAPARIN SODIUM
     Indication: Thrombosis prophylaxis
     Route: 058
     Dates: start: 20250624, end: 20250715
  20. MIDAZOLAM [Concomitant]
     Active Substance: MIDAZOLAM
     Indication: Palliative care
     Route: 042
     Dates: start: 20250724, end: 20250725
  21. TAMSULOSIN [Concomitant]
     Active Substance: TAMSULOSIN
     Route: 048
     Dates: start: 20250615, end: 20250723

REACTIONS (2)
  - Plasma cell myeloma [Fatal]
  - Malignant neoplasm progression [Fatal]

NARRATIVE: CASE EVENT DATE: 20250725
